FAERS Safety Report 13921553 (Version 1)
Quarter: 2017Q3

REPORT INFORMATION
  Report Type: Spontaneous
  Country: US (occurrence: None)
  Receive Date: 20170830
  Receipt Date: 20170830
  Transmission Date: 20171127
  Serious: No
  Sender: FDA-Public Use
  Company Number: None

PATIENT
  Age: 72 Year
  Sex: Female
  Weight: 62.14 kg

DRUGS (7)
  1. ATORVASTATIN CALCIUM TABLETS [Suspect]
     Active Substance: ATORVASTATIN CALCIUM
     Indication: BLOOD CHOLESTEROL INCREASED
     Dosage: 10 MG 30 1/AT EVENING BY MOUTH
     Route: 048
     Dates: start: 20170719, end: 20170726
  2. RAINTIDINE [Concomitant]
  3. KREEL OIL [Concomitant]
  4. VITAMIN D3 [Concomitant]
     Active Substance: CHOLECALCIFEROL
  5. FISH OIL [Concomitant]
     Active Substance: FISH OIL
  6. ALEDRONATE [Concomitant]
  7. LISINOPRL [Concomitant]
     Active Substance: LISINOPRIL

REACTIONS (4)
  - Back pain [None]
  - Asthenia [None]
  - Pain in extremity [None]
  - Abdominal pain [None]

NARRATIVE: CASE EVENT DATE: 20170719
